FAERS Safety Report 8458866-4 (Version None)
Quarter: 2012Q2

REPORT INFORMATION
  Report Type: 
  Country: None (occurrence: None)
  Receive Date: 20120622
  Receipt Date: 20120612
  Transmission Date: 20120825
  Serious: Yes (Hospitalization)
  Sender: FDA-Public Use
  Company Number: US-ELI_LILLY_AND_COMPANY-US201206004298

PATIENT
  Age: 72 Year
  Sex: Female

DRUGS (3)
  1. CYMBALTA [Suspect]
     Indication: FIBROMYALGIA
  2. SEROQUEL [Concomitant]
  3. RISPERIDONE [Concomitant]

REACTIONS (6)
  - ABASIA [None]
  - PAIN [None]
  - HOSPITALISATION [None]
  - DEMENTIA [None]
  - OEDEMA PERIPHERAL [None]
  - FEELING ABNORMAL [None]
